FAERS Safety Report 9794647 (Version 2)
Quarter: 2014Q1

REPORT INFORMATION
  Report Type: Spontaneous
  Country: FR (occurrence: FR)
  Receive Date: 20140102
  Receipt Date: 20140122
  Transmission Date: 20141002
  Serious: Yes (Hospitalization)
  Sender: FDA-Public Use
  Company Number: FR-GLAXOSMITHKLINE-B0956899A

PATIENT
  Age: 34 Year
  Sex: Male

DRUGS (3)
  1. SORIATANE [Suspect]
     Indication: PSORIASIS
     Dosage: 50MG PER DAY
     Route: 048
     Dates: start: 20131105, end: 20131117
  2. DAIVOBET [Concomitant]
     Route: 065
     Dates: start: 20131105
  3. BETNEVAL [Concomitant]
     Route: 065

REACTIONS (1)
  - Erythema multiforme [Recovered/Resolved]
